FAERS Safety Report 24783070 (Version 1)
Quarter: 2024Q4

REPORT INFORMATION
  Report Type: Spontaneous
  Country: PT (occurrence: PT)
  Receive Date: 20241227
  Receipt Date: 20241227
  Transmission Date: 20250114
  Serious: Yes (Other)
  Sender: AMNEAL
  Company Number: PT-AMNEAL PHARMACEUTICALS-2024-AMRX-04658

PATIENT
  Age: 70 Year
  Sex: Male

DRUGS (1)
  1. CAPECITABINE [Suspect]
     Active Substance: CAPECITABINE
     Indication: Chemotherapy
     Dosage: ONE DAY AFTER THE 15TH CHEMOTHERAPY CYCLE
     Route: 065

REACTIONS (1)
  - Terminal ileitis [Recovering/Resolving]
